FAERS Safety Report 15749453 (Version 1)
Quarter: 2018Q4

REPORT INFORMATION
  Report Type: Spontaneous
  Country: US (occurrence: US)
  Receive Date: 20181205
  Receipt Date: 20181205
  Transmission Date: 20190205
  Serious: No
  Sender: FDA-Public Use
  Company Number: None

PATIENT
  Age: 51 Year

DRUGS (1)
  1. ENTECAVIR  0.5MG TAB (X30) [Suspect]
     Active Substance: ENTECAVIR
     Route: 048
     Dates: start: 201807

REACTIONS (3)
  - Headache [None]
  - Product availability issue [None]
  - Product dose omission [None]

NARRATIVE: CASE EVENT DATE: 20181203
